FAERS Safety Report 8471296-4 (Version None)
Quarter: 2012Q2

REPORT INFORMATION
  Report Type: 
  Country: None (occurrence: None)
  Receive Date: 20120627
  Receipt Date: 20120623
  Transmission Date: 20120825
  Serious: Yes (Other)
  Sender: FDA-Public Use
  Company Number: US-PFIZER INC-2012151144

PATIENT
  Sex: Male
  Weight: 87.982 kg

DRUGS (13)
  1. LYRICA [Suspect]
     Indication: ARTHRITIS
     Dosage: 150 MG DAILY
     Dates: start: 20070501
  2. LYRICA [Suspect]
     Dosage: 600 MG, DAILY
     Dates: start: 20120601
  3. LORTAB [Concomitant]
     Indication: NEUROPATHY PERIPHERAL
  4. TRAMADOL [Concomitant]
     Indication: NEUROPATHY PERIPHERAL
  5. LYRICA [Suspect]
     Indication: FIBROMYALGIA
     Dosage: 225 MG DAILY
     Dates: start: 20120301
  6. LORTAB [Concomitant]
     Indication: RHEUMATOID ARTHRITIS
     Dosage: UNK, 4 TOGETHER EVERY 6 HOURS
  7. KLOR-CON M20 [Concomitant]
     Indication: DIURETIC THERAPY
     Dosage: 20 MEQ DAILY
  8. SINEMET CR [Concomitant]
     Indication: PARKINSON'S DISEASE
     Dosage: 25/100 MG, 2X/DAY
     Route: 048
  9. PLAQUENIL [Concomitant]
     Indication: RHEUMATOID ARTHRITIS
     Dosage: 200 MG, 2X/DAY
  10. TRAMADOL [Concomitant]
     Indication: RHEUMATOID ARTHRITIS
     Dosage: 50MG TWO OF THEM TOGETHER, EVERY 6 HOURS
  11. ALDACTONE [Concomitant]
     Indication: SWELLING
     Dosage: 25 MG DAILY
  12. DIOVAN [Concomitant]
     Indication: HYPERTENSION
     Dosage: 160 MG DAILY
  13. LASIX [Concomitant]
     Indication: SWELLING
     Dosage: 40 MG, 2X/DAY

REACTIONS (5)
  - WITHDRAWAL SYNDROME [None]
  - BLOOD POTASSIUM DECREASED [None]
  - SWOLLEN TONGUE [None]
  - SWELLING FACE [None]
  - PAIN IN JAW [None]
